FAERS Safety Report 20627233 (Version 1)
Quarter: 2022Q1

REPORT INFORMATION
  Report Type: Spontaneous
  Country: CA (occurrence: CA)
  Receive Date: 20220323
  Receipt Date: 20220323
  Transmission Date: 20220423
  Serious: Yes (Death, Other)
  Sender: FDA-Public Use
  Company Number: CA-GLAXOSMITHKLINE-CA2022GSK052069

PATIENT
  Sex: Male

DRUGS (1)
  1. ZANTAC [Suspect]
     Active Substance: RANITIDINE HYDROCHLORIDE
     Indication: Gastrooesophageal reflux disease
     Dosage: UNK, DAILY
     Route: 065
     Dates: start: 2010

REACTIONS (6)
  - Death [Fatal]
  - Gastrooesophageal cancer [Unknown]
  - Metastases to bone [Unknown]
  - Metastases to pelvis [Unknown]
  - Metastases to peritoneum [Unknown]
  - Metastases to liver [Unknown]
